FAERS Safety Report 5958094-8 (Version None)
Quarter: 2008Q4

REPORT INFORMATION
  Report Type: 
  Country: None (occurrence: None)
  Receive Date: 20081119
  Receipt Date: 20081114
  Transmission Date: 20090506
  Serious: Yes (Other)
  Sender: FDA-Public Use
  Company Number: B0546383A

PATIENT
  Sex: Female

DRUGS (2)
  1. AUGMENTIN '125' [Suspect]
     Indication: GINGIVAL SWELLING
     Dosage: 375MG THREE TIMES PER DAY
     Route: 048
  2. TRIMETHOPRIM [Concomitant]

REACTIONS (9)
  - AGITATION [None]
  - DIZZINESS [None]
  - EYE PRURITUS [None]
  - MOOD ALTERED [None]
  - NERVOUSNESS [None]
  - PARAESTHESIA [None]
  - RETCHING [None]
  - SOMNOLENCE [None]
  - SYNCOPE [None]
